FAERS Safety Report 18031981 (Version 1)
Quarter: 2020Q3

REPORT INFORMATION
  Report Type: Report from Study
  Country: US (occurrence: US)
  Receive Date: 20200716
  Receipt Date: 20200716
  Transmission Date: 20201103
  Serious: Yes (Hospitalization, Other)
  Sender: FDA-Public Use
  Company Number: US-AMGEN-USASL2020105209

PATIENT
  Age: 53 Year
  Sex: Female

DRUGS (1)
  1. ENBREL [Suspect]
     Active Substance: ETANERCEPT
     Indication: RHEUMATOID ARTHRITIS
     Dosage: 50 MILLIGRAM, QWK
     Route: 065

REACTIONS (7)
  - Intestinal perforation [Unknown]
  - Swelling [Unknown]
  - Dyspnoea [Unknown]
  - Abdominal pain upper [Unknown]
  - Diverticulitis [Unknown]
  - Infection [Unknown]
  - Flatulence [Unknown]
